FAERS Safety Report 5761631-X (Version None)
Quarter: 2008Q2

REPORT INFORMATION
  Report Type: 
  Country: None (occurrence: None)
  Receive Date: 20080606
  Receipt Date: 20080529
  Transmission Date: 20081010
  Serious: Yes (Hospitalization)
  Sender: FDA-Public Use
  Company Number: BR-PFIZER INC-2008036096

PATIENT
  Sex: Male
  Weight: 85 kg

DRUGS (7)
  1. CAVERJECT [Suspect]
     Indication: ERECTILE DYSFUNCTION
  2. METFORMIN HYDROCHLORIDE [Concomitant]
     Route: 048
  3. GLIMEPIRIDE [Concomitant]
     Route: 048
  4. ATENOLOL [Concomitant]
     Route: 048
  5. AAS [Concomitant]
     Route: 048
  6. MONOCORDIL [Concomitant]
     Route: 048
  7. LIPITOR [Concomitant]
     Route: 048

REACTIONS (5)
  - BACK PAIN [None]
  - BURNING SENSATION [None]
  - DRUG INEFFECTIVE [None]
  - URETHRAL PAIN [None]
  - WRONG TECHNIQUE IN DRUG USAGE PROCESS [None]
